FAERS Safety Report 9493779 (Version 2)
Quarter: 2013Q3

REPORT INFORMATION
  Report Type: Spontaneous
  Country: FR (occurrence: FR)
  Receive Date: 20130902
  Receipt Date: 20130905
  Transmission Date: 20140515
  Serious: Yes (Hospitalization)
  Sender: FDA-Public Use
  Company Number: FR-ROCHE-1267036

PATIENT
  Age: 39 Year
  Sex: Female

DRUGS (3)
  1. MABTHERA [Suspect]
     Indication: SYSTEMIC LUPUS ERYTHEMATOSUS
     Route: 042
     Dates: start: 20130718, end: 20130718
  2. SOLU-MEDROL [Concomitant]
     Route: 065
  3. ATARAX (FRANCE) [Concomitant]

REACTIONS (6)
  - Urticaria [Recovered/Resolved]
  - Hypersensitivity vasculitis [Recovered/Resolved]
  - Pyrexia [Recovered/Resolved]
  - Arthralgia [Recovered/Resolved]
  - Headache [Recovered/Resolved]
  - Serum sickness [Recovered/Resolved]
